FAERS Safety Report 8984426 (Version 1)
Quarter: 2012Q4

REPORT INFORMATION
  Report Type: Spontaneous
  Country: GB (occurrence: None)
  Receive Date: 20121214
  Receipt Date: 20121214
  Transmission Date: 20130627
  Serious: Yes (Hospitalization)
  Sender: FDA-Public Use
  Company Number: 2012-22093

PATIENT
  Age: 84 Year

DRUGS (8)
  1. NAPROXEN [Suspect]
     Indication: OSTEOARTHRITIS
     Route: 048
  2. RABEPRAZOLE [Concomitant]
  3. SIMVASTATIN (SIMVASTATIN) [Concomitant]
  4. AMLODIPINE (AMLODIPINE) [Concomitant]
  5. QUININE (QUININE) [Concomitant]
  6. METOCLOPRAMIDE (METOCLOPRAMIDE) [Concomitant]
  7. SODIUM PICOSULFATE (SODIUM PICOSULFATE) [Concomitant]
  8. CO-DYDRAMOL (DIHYDROCODEINE BITARTRATE, PARACETAMOL) [Concomitant]

REACTIONS (2)
  - Duodenal ulcer haemorrhage [None]
  - Haemoglobin decreased [None]
